FAERS Safety Report 18010665 (Version 6)
Quarter: 2020Q4

REPORT INFORMATION
  Report Type: Report from Study
  Country: PL (occurrence: PL)
  Receive Date: 20200710
  Receipt Date: 20201119
  Transmission Date: 20210113
  Serious: Yes (Death, Other)
  Sender: FDA-Public Use
  Company Number: PL-EXELIXIS-XL18420031178

PATIENT
  Age: 77 Year
  Sex: Male
  Weight: 58 kg

DRUGS (14)
  1. XL184 [Suspect]
     Active Substance: CABOZANTINIB
     Dosage: UNK
  2. POLPRIL [Concomitant]
     Active Substance: RAMIPRIL
  3. PANTOPRAZOL [Concomitant]
     Active Substance: PANTOPRAZOLE SODIUM
  4. LACTULOSUM [Concomitant]
  5. FUROSEMID [Concomitant]
     Active Substance: FUROSEMIDE
  6. XL184 [Suspect]
     Active Substance: CABOZANTINIB
     Indication: HEPATOCELLULAR CARCINOMA
     Dosage: 40 MG, QD
     Route: 048
     Dates: start: 20200616
  7. ACARD [Concomitant]
     Active Substance: ASPIRIN
  8. EUTHYROX [Concomitant]
     Active Substance: LEVOTHYROXINE SODIUM
  9. SPIRONOL [Concomitant]
     Active Substance: SPIRONOLACTONE
  10. ATEZOLIZUMAB. [Suspect]
     Active Substance: ATEZOLIZUMAB
     Indication: HEPATOCELLULAR CARCINOMA
     Dosage: 1200 MG, Q3WEEKS
     Route: 042
     Dates: start: 20200616
  11. HUMALOG [Concomitant]
     Active Substance: INSULIN LISPRO
  12. ATROX [Concomitant]
     Active Substance: ATORVASTATIN CALCIUM
  13. AMLOZEK [Concomitant]
     Active Substance: AMLODIPINE BESYLATE
  14. ADATAM [Concomitant]

REACTIONS (1)
  - Hepatic failure [Fatal]

NARRATIVE: CASE EVENT DATE: 20200701
